FAERS Safety Report 11111402 (Version 2)
Quarter: 2018Q1

REPORT INFORMATION
  Report Type: Spontaneous
  Country: US (occurrence: US)
  Receive Date: 20150513
  Receipt Date: 20180315
  Transmission Date: 20180508
  Serious: Yes (Death)
  Sender: FDA-Public Use
  Company Number: US-ENDO PHARMACEUTICALS INC.-201501113

PATIENT
  Age: 50 Year
  Sex: Male

DRUGS (2)
  1. TESTIM [Suspect]
     Active Substance: TESTOSTERONE
     Indication: ERECTILE DYSFUNCTION
  2. TESTIM [Suspect]
     Active Substance: TESTOSTERONE
     Indication: BLOOD TESTOSTERONE DECREASED
     Dosage: 50 MG, UNKNOWN
     Route: 062
     Dates: start: 2010, end: 2011

REACTIONS (4)
  - Head injury [Fatal]
  - Transient ischaemic attack [Fatal]
  - Myocardial infarction [Fatal]
  - Apnoeic attack [Fatal]

NARRATIVE: CASE EVENT DATE: 20110529
